FAERS Safety Report 23020286 (Version 1)
Quarter: 2023Q4

REPORT INFORMATION
  Report Type: Spontaneous
  Country: US (occurrence: US)
  Receive Date: 20231003
  Receipt Date: 20231003
  Transmission Date: 20240110
  Serious: Yes (Life-Threatening, Other)
  Sender: FDA-Public Use
  Company Number: US-PFIZER INC-PV202300163088

PATIENT
  Age: 64 Year
  Sex: Male
  Weight: 69 kg

DRUGS (1)
  1. DOXYCYCLINE HYCLATE [Suspect]
     Active Substance: DOXYCYCLINE HYCLATE
     Indication: Pleurodesis
     Dosage: UNK

REACTIONS (2)
  - Treatment failure [Unknown]
  - Off label use [Unknown]
